FAERS Safety Report 4761197-7 (Version None)
Quarter: 2005Q3

REPORT INFORMATION
  Report Type: 
  Country: None (occurrence: None)
  Receive Date: 20050901
  Receipt Date: 20050525
  Transmission Date: 20060218
  Serious: Yes (Life-Threatening, Hospitalization)
  Sender: FDA-Public Use
  Company Number: 2005FR-00233

PATIENT
  Age: 62 Year
  Sex: Male

DRUGS (2)
  1. AMOXICILLIN [Suspect]
     Indication: LOWER RESPIRATORY TRACT INFECTION
     Dosage: ORAL
     Route: 048
  2. ERYTHROMYCIN [Suspect]
     Indication: LOWER RESPIRATORY TRACT INFECTION
     Dosage: ORAL
     Route: 048

REACTIONS (1)
  - NEUTROPENIA [None]
